FAERS Safety Report 24393666 (Version 1)
Quarter: 2024Q4

REPORT INFORMATION
  Report Type: Report from Study
  Country: US (occurrence: US)
  Receive Date: 20241003
  Receipt Date: 20241003
  Transmission Date: 20250114
  Serious: Yes (Other)
  Sender: ALEXION PHARMACEUTICALS
  Company Number: US-AstraZeneca-CH-00709222A

PATIENT

DRUGS (8)
  1. FARXIGA [Suspect]
     Active Substance: DAPAGLIFLOZIN PROPANEDIOL
  2. FARXIGA [Suspect]
     Active Substance: DAPAGLIFLOZIN PROPANEDIOL
  3. FARXIGA [Suspect]
     Active Substance: DAPAGLIFLOZIN PROPANEDIOL
  4. FARXIGA [Suspect]
     Active Substance: DAPAGLIFLOZIN PROPANEDIOL
  5. BRILINTA [Suspect]
     Active Substance: TICAGRELOR
  6. BRILINTA [Suspect]
     Active Substance: TICAGRELOR
  7. BRILINTA [Suspect]
     Active Substance: TICAGRELOR
  8. BRILINTA [Suspect]
     Active Substance: TICAGRELOR

REACTIONS (2)
  - Obstruction [Unknown]
  - Myocardial infarction [Unknown]
